FAERS Safety Report 5521985-6 (Version None)
Quarter: 2007Q4

REPORT INFORMATION
  Report Type: 
  Country: None (occurrence: None)
  Receive Date: 20071120
  Receipt Date: 20070731
  Transmission Date: 20080405
  Serious: No
  Sender: FDA-Public Use
  Company Number: US-BRISTOL-MYERS SQUIBB COMPANY-13863675

PATIENT
  Sex: Female
  Weight: 63 kg

DRUGS (6)
  1. AVALIDE [Suspect]
     Indication: HYPERTENSION
     Route: 048
     Dates: start: 20070727
  2. COREG [Concomitant]
  3. DETROL LA [Concomitant]
  4. OS-CAL PLUS [Concomitant]
  5. XALATAN [Concomitant]
  6. ZETIA [Concomitant]

REACTIONS (2)
  - DYSGEUSIA [None]
  - FEELING ABNORMAL [None]
